FAERS Safety Report 19487517 (Version 1)
Quarter: 2021Q3

REPORT INFORMATION
  Report Type: Spontaneous
  Country: US (occurrence: US)
  Receive Date: 20210702
  Receipt Date: 20210702
  Transmission Date: 20211014
  Serious: No
  Sender: FDA-Public Use
  Company Number: US-PFIZER INC-2021645329

PATIENT
  Age: 14 Year
  Sex: Male

DRUGS (2)
  1. DYANAVEL XR [Concomitant]
     Active Substance: AMPHETAMINE
     Indication: ATTENTION DEFICIT HYPERACTIVITY DISORDER
     Dosage: 6 ML, DAILY, EVERY MORNING
  2. GENOTROPIN [Suspect]
     Active Substance: SOMATROPIN
     Indication: BLOOD GROWTH HORMONE
     Dosage: 2.0 MG, DAILY, INJECTION EVERY NIGHT
     Dates: start: 201812

REACTIONS (4)
  - Poor quality product administered [Unknown]
  - Device information output issue [Unknown]
  - Device use issue [Unknown]
  - Headache [Unknown]

NARRATIVE: CASE EVENT DATE: 20210601
